FAERS Safety Report 7610509-5 (Version None)
Quarter: 2011Q3

REPORT INFORMATION
  Report Type: 
  Country: None (occurrence: None)
  Receive Date: 20110715
  Receipt Date: 20070905
  Transmission Date: 20111222
  Serious: Yes (Hospitalization, Other)
  Sender: FDA-Public Use
  Company Number: US-BAYER-201042037NA

PATIENT
  Age: 48 Year
  Sex: Male
  Weight: 124.72 kg

DRUGS (23)
  1. NORVASC [Concomitant]
  2. METOPROLOL TARTRATE [Concomitant]
  3. HYDROCHLOROTHIAZIDE [Concomitant]
  4. ASCRIPTIN [Concomitant]
  5. ACETYLSALICYLIC ACID SRT [Concomitant]
  6. SURFAK [Concomitant]
  7. TRASYLOL [Suspect]
     Dosage: 200 ML LOADING DOSE
     Route: 042
     Dates: start: 20050906, end: 20050906
  8. VANTIN [Concomitant]
  9. LIPITOR [Concomitant]
  10. FUROSEMIDE [Concomitant]
  11. VERSED [Concomitant]
     Dosage: UNK
     Dates: start: 20050906
  12. TRASYLOL [Suspect]
     Dosage: 50  ML/ HOUR INFUSION
     Route: 042
     Dates: start: 20050906, end: 20050906
  13. LOPRESSOR [Concomitant]
  14. LIDOCAINE [Concomitant]
     Dosage: UNK
     Dates: start: 20050906
  15. FENTANYL [Concomitant]
     Dosage: UNK
     Dates: start: 20050906
  16. ALPRAZOLAM [Concomitant]
  17. COUMADIN [Concomitant]
  18. TRASYLOL [Suspect]
     Indication: MITRAL VALVE REPLACEMENT
     Dosage: 1 ML, TEST DOSE
     Route: 042
     Dates: start: 20050906, end: 20050906
  19. CORDARONE [Concomitant]
  20. ENALAPRIL MALEATE [Concomitant]
  21. SPIRIVA [Concomitant]
  22. LASIX [Concomitant]
     Dosage: UNK
     Dates: start: 20050906
  23. PREVACID [Concomitant]

REACTIONS (10)
  - STRESS [None]
  - RENAL IMPAIRMENT [None]
  - FEAR [None]
  - PAIN [None]
  - RENAL INJURY [None]
  - UNEVALUABLE EVENT [None]
  - EMOTIONAL DISTRESS [None]
  - ANXIETY [None]
  - DEPRESSION [None]
  - RENAL FAILURE [None]
